FAERS Safety Report 5566808-4 (Version None)
Quarter: 2007Q4

REPORT INFORMATION
  Report Type: 
  Country: None (occurrence: None)
  Receive Date: 20071219
  Receipt Date: 20071217
  Transmission Date: 20080405
  Serious: Yes (Other)
  Sender: FDA-Public Use
  Company Number: B0496643A

PATIENT
  Age: 12 Year
  Sex: Female
  Weight: 36.3 kg

DRUGS (7)
  1. RELENZA [Suspect]
     Indication: INFLUENZA
     Dosage: 10MG TWICE PER DAY
     Route: 055
     Dates: start: 20071117, end: 20071121
  2. BRUFEN [Concomitant]
     Route: 048
  3. ZITHROMAX [Concomitant]
     Route: 048
  4. ASTOMIN [Concomitant]
     Route: 048
  5. HOKUNALIN [Concomitant]
     Route: 062
  6. MUCODYNE [Concomitant]
     Route: 048
  7. LOXONIN [Concomitant]

REACTIONS (1)
  - DELIRIUM [None]
